FAERS Safety Report 9863022 (Version 4)
Quarter: 2015Q1

REPORT INFORMATION
  Report Type: Spontaneous
  Country: US (occurrence: US)
  Receive Date: 20140203
  Receipt Date: 20150330
  Transmission Date: 20150721
  Serious: Yes (Death, Life-Threatening, Hospitalization, Other)
  Sender: FDA-Public Use
  Company Number: US-009507513-1401USA014690

PATIENT
  Sex: Female
  Weight: 63.49 kg

DRUGS (3)
  1. JANUVIA [Suspect]
     Active Substance: SITAGLIPTIN PHOSPHATE
     Indication: TYPE 2 DIABETES MELLITUS
     Dosage: 50 MG, QD
     Route: 048
     Dates: start: 20081206, end: 20091002
  2. JANUVIA [Suspect]
     Active Substance: SITAGLIPTIN PHOSPHATE
     Dosage: 25 MG, QD
     Route: 048
     Dates: start: 20110624, end: 20120322
  3. JANUVIA [Suspect]
     Active Substance: SITAGLIPTIN PHOSPHATE
     Dosage: 25 MG, QD
     Route: 048
     Dates: start: 20090820, end: 20091020

REACTIONS (37)
  - Death [Fatal]
  - Pancreatic carcinoma metastatic [Fatal]
  - Gastroenterostomy [Unknown]
  - Metastases to spleen [Unknown]
  - Hypokalaemia [Unknown]
  - Dementia [Unknown]
  - Hypokalaemia [Unknown]
  - Cerebral infarction [Unknown]
  - Leg amputation [Unknown]
  - Metastases to liver [Unknown]
  - Chronic kidney disease [Not Recovered/Not Resolved]
  - Cardiomegaly [Unknown]
  - Seizure [Unknown]
  - Failure to thrive [Unknown]
  - Malnutrition [Unknown]
  - Femur fracture [Unknown]
  - Deafness [Unknown]
  - Cardiac failure congestive [Unknown]
  - Cardiomyopathy [Unknown]
  - Adnexa uteri mass [Unknown]
  - Haemorrhagic anaemia [Unknown]
  - Presyncope [Unknown]
  - Metastases to lung [Unknown]
  - Hepatic failure [Unknown]
  - Pancreatitis [Unknown]
  - Peripheral vascular disorder [Unknown]
  - Sinus disorder [Unknown]
  - Delirium [Unknown]
  - Cerebrovascular disorder [Unknown]
  - Pancreatic carcinoma [Unknown]
  - Obstruction gastric [Unknown]
  - Faecaloma [Unknown]
  - Adrenal mass [Unknown]
  - Metastases to peritoneum [Unknown]
  - Atelectasis [Unknown]
  - Anaemia of chronic disease [Not Recovered/Not Resolved]
  - Diastolic dysfunction [Unknown]

NARRATIVE: CASE EVENT DATE: 20091108
